FAERS Safety Report 4929796-7 (Version None)
Quarter: 2006Q1

REPORT INFORMATION
  Report Type: 
  Country: None (occurrence: None)
  Receive Date: 20060127
  Receipt Date: 20051120
  Transmission Date: 20060701
  Serious: Yes (Other)
  Sender: FDA-Public Use
  Company Number: 2005158980

PATIENT
  Age: 74 Year
  Sex: Male
  Weight: 119.7496 kg

DRUGS (12)
  1. LYRICA [Suspect]
     Indication: NEUROPATHY
     Dosage: 150 MG (50 MG, 3 IN 1 D), ORAL
     Route: 048
     Dates: start: 20051101
  2. HUMALOG [Concomitant]
  3. LANTUS [Concomitant]
  4. PROTONIX [Concomitant]
  5. PLETAL (CILOSTAZOL) [Concomitant]
  6. TRICOR [Concomitant]
  7. ASPIRIN [Concomitant]
  8. PLAVIX [Concomitant]
  9. ATENOLOL [Concomitant]
  10. IMDUR [Concomitant]
  11. FLOMAX ^CSL^ (TAMSULOSIN HYDROCHLORIDE) [Concomitant]
  12. WELCHOL [Concomitant]

REACTIONS (6)
  - BLOOD GLUCOSE INCREASED [None]
  - BOWEL MOVEMENT IRREGULARITY [None]
  - DIZZINESS [None]
  - FACIAL PALSY [None]
  - GASTROINTESTINAL HYPOMOTILITY [None]
  - SOMNOLENCE [None]
